FAERS Safety Report 24238556 (Version 1)
Quarter: 2024Q3

REPORT INFORMATION
  Report Type: Spontaneous
  Country: BR (occurrence: BR)
  Receive Date: 20240822
  Receipt Date: 20240822
  Transmission Date: 20241016
  Serious: Yes (Other)
  Sender: GLAXOSMITHKLINE
  Company Number: BR-GLAXOSMITHKLINE-BR2024AMR100765

PATIENT

DRUGS (3)
  1. FLUTICASONE FUROATE [Suspect]
     Active Substance: FLUTICASONE FUROATE
     Indication: Sinusitis
     Dosage: UNK (USING SINCE THE PREVIOUS YEAR)
  2. FLUTICASONE FUROATE [Suspect]
     Active Substance: FLUTICASONE FUROATE
     Indication: Sinusitis
     Dosage: UNK (USING SINCE THE PREVIOUS YEAR)
  3. FLUTICASONE FUROATE [Suspect]
     Active Substance: FLUTICASONE FUROATE
     Indication: Sinusitis
     Dosage: UNK (USING SINCE THE PREVIOUS YEAR)

REACTIONS (3)
  - Cyst removal [Unknown]
  - Sinusitis [Unknown]
  - Product use in unapproved indication [Unknown]
